FAERS Safety Report 14660787 (Version 4)
Quarter: 2018Q2

REPORT INFORMATION
  Report Type: Spontaneous
  Country: RU (occurrence: RU)
  Receive Date: 20180320
  Receipt Date: 20180522
  Transmission Date: 20180711
  Serious: Yes (Hospitalization, Other)
  Sender: FDA-Public Use
  Company Number: RU-ASTRAZENECA-2018SE33550

PATIENT
  Age: 79 Year
  Sex: Male
  Weight: 96 kg

DRUGS (3)
  1. BRETARIS GENUAIR [Suspect]
     Active Substance: ACLIDINIUM BROMIDE
     Indication: CHRONIC OBSTRUCTIVE PULMONARY DISEASE
     Dosage: 322 MCG\DOSE, (MADE ONLY 4 INHALES)
     Route: 055
     Dates: start: 20180219
  2. BRETARIS GENUAIR [Suspect]
     Active Substance: ACLIDINIUM BROMIDE
     Indication: ASTHMA
     Dosage: 322 MCG\DOSE, (MADE ONLY 4 INHALES)
     Route: 055
     Dates: start: 20180219
  3. SPIRIVA [Concomitant]
     Active Substance: TIOTROPIUM BROMIDE MONOHYDRATE

REACTIONS (6)
  - Device issue [Unknown]
  - Dyspnoea [Unknown]
  - Speech disorder [Unknown]
  - Asphyxia [Unknown]
  - Drug ineffective [Recovered/Resolved]
  - Asthma [Unknown]

NARRATIVE: CASE EVENT DATE: 20180220
